FAERS Safety Report 21454347 (Version 1)
Quarter: 2022Q4

REPORT INFORMATION
  Report Type: Spontaneous
  Country: US (occurrence: None)
  Receive Date: 20221013
  Receipt Date: 20221013
  Transmission Date: 20230112
  Serious: Yes (Hospitalization)
  Sender: FDA-Public Use
  Company Number: None

PATIENT
  Age: 39 Year
  Sex: Female
  Weight: 80.2 kg

DRUGS (3)
  1. METHOTREXATE [Suspect]
     Active Substance: METHOTREXATE
     Dates: end: 20220927
  2. ONCASPAR [Suspect]
     Active Substance: PEGASPARGASE
     Dosage: OTHER QUANTITY : 7500 UNIT;?
     Dates: end: 20220922
  3. RITUXIMAB [Suspect]
     Active Substance: RITUXIMAB
     Dates: end: 20220905

REACTIONS (10)
  - Cytopenia [None]
  - Clostridium difficile colitis [None]
  - Neuropathy peripheral [None]
  - Jugular vein thrombosis [None]
  - Thrombophlebitis [None]
  - Subclavian vein thrombosis [None]
  - Oedema peripheral [None]
  - Hepatic steatosis [None]
  - Lactic acidosis [None]
  - Respiratory failure [None]

NARRATIVE: CASE EVENT DATE: 20221004
